FAERS Safety Report 7928045-5 (Version None)
Quarter: 2011Q4

REPORT INFORMATION
  Report Type: 
  Country: None (occurrence: None)
  Receive Date: 20111117
  Receipt Date: 20111117
  Transmission Date: 20120403
  Serious: No
  Sender: FDA-Public Use
  Company Number: None

PATIENT

DRUGS (2)
  1. GUANFACINE HYDROCHLORIDE [Suspect]
  2. GUAIFENESIN [Suspect]

REACTIONS (2)
  - MEDICATION ERROR [None]
  - DRUG PRESCRIBING ERROR [None]
